FAERS Safety Report 17640685 (Version 1)
Quarter: 2020Q2

REPORT INFORMATION
  Report Type: Spontaneous
  Country: US (occurrence: US)
  Receive Date: 20200407
  Receipt Date: 20200407
  Transmission Date: 20200713
  Serious: No
  Sender: FDA-Public Use
  Company Number: US-STRONGBRIDGE BIOPHARMA-2020-STR-000086

PATIENT
  Sex: Male

DRUGS (1)
  1. KEVEYIS [Suspect]
     Active Substance: DICHLORPHENAMIDE
     Indication: MYOTONIA CONGENITA
     Dosage: 50 MG, BID
     Route: 048

REACTIONS (10)
  - Nausea [Recovered/Resolved]
  - Amnesia [Recovering/Resolving]
  - Feeling abnormal [Recovered/Resolved]
  - Dry mouth [Recovering/Resolving]
  - Dyspnoea [Recovering/Resolving]
  - Libido decreased [Recovering/Resolving]
  - Dizziness [Recovered/Resolved]
  - Vomiting [Recovered/Resolved]
  - Therapeutic product effect incomplete [Recovering/Resolving]
  - Paraesthesia [Recovering/Resolving]
